FAERS Safety Report 7138674-7 (Version None)
Quarter: 2010Q4

REPORT INFORMATION
  Report Type: 
  Country: None (occurrence: None)
  Receive Date: 20101122
  Receipt Date: 20101020
  Transmission Date: 20110411
  Serious: Yes (Hospitalization)
  Sender: FDA-Public Use
  Company Number: LEO-2010-00839

PATIENT
  Age: 40 Year
  Sex: Female
  Weight: 97.6 kg

DRUGS (4)
  1. TACLONEX [Suspect]
     Indication: PSORIASIS
     Dosage: (EVERY DAY) TOPICAL
     Route: 061
     Dates: start: 20050101, end: 20100826
  2. ARMODAFINIL [Concomitant]
  3. LIPSIN (FENOFIBRATE) [Concomitant]
  4. EFFEXOR [Concomitant]

REACTIONS (9)
  - CUSHINGOID [None]
  - DEPRESSION [None]
  - FATIGUE [None]
  - INCREASED TENDENCY TO BRUISE [None]
  - INTERVERTEBRAL DISC PROTRUSION [None]
  - LIPOHYPERTROPHY [None]
  - POLYURIA [None]
  - SLEEP APNOEA SYNDROME [None]
  - WEIGHT INCREASED [None]
